FAERS Safety Report 17440188 (Version 1)
Quarter: 2020Q1

REPORT INFORMATION
  Report Type: Spontaneous
  Country: CN (occurrence: CN)
  Receive Date: 20200220
  Receipt Date: 20200220
  Transmission Date: 20200409
  Serious: Yes (Life-Threatening)
  Sender: FDA-Public Use
  Company Number: CN-BAYER-2020-025345

PATIENT
  Age: 56 Year
  Sex: Female
  Weight: 65 kg

DRUGS (3)
  1. AVELOX [Suspect]
     Active Substance: MOXIFLOXACIN HYDROCHLORIDE
     Indication: CHRONIC OBSTRUCTIVE PULMONARY DISEASE
  2. AVELOX [Suspect]
     Active Substance: MOXIFLOXACIN HYDROCHLORIDE
     Indication: INFECTION
     Dosage: 0.4 G, QD
     Route: 041
     Dates: start: 20191105, end: 20191105
  3. AVELOX [Suspect]
     Active Substance: MOXIFLOXACIN HYDROCHLORIDE
     Indication: PNEUMONIA

REACTIONS (7)
  - Dizziness [Recovered/Resolved]
  - Loss of consciousness [Recovered/Resolved]
  - Palpitations [Recovered/Resolved]
  - Hypotension [Recovered/Resolved]
  - Heart rate increased [Recovered/Resolved]
  - Shock [Recovered/Resolved]
  - Cold sweat [Recovered/Resolved]

NARRATIVE: CASE EVENT DATE: 20191105
